FAERS Safety Report 22268246 (Version 1)
Quarter: 2023Q2

REPORT INFORMATION
  Report Type: Spontaneous
  Country: US (occurrence: US)
  Receive Date: 20230430
  Receipt Date: 20230430
  Transmission Date: 20230721
  Serious: No
  Sender: FDA-Public Use
  Company Number: US-SA-2023SA126539

PATIENT
  Sex: Female

DRUGS (17)
  1. DUPIXENT [Suspect]
     Active Substance: DUPILUMAB
     Indication: Dermatitis atopic
     Dosage: 300 MG, QOW
     Route: 058
  2. RINVOQ [Suspect]
     Active Substance: UPADACITINIB
     Dosage: UNK
     Route: 048
     Dates: start: 202302
  3. ALPRAZOLAM [Concomitant]
     Active Substance: ALPRAZOLAM
     Dosage: UNK
  4. BUPROPION [Concomitant]
     Active Substance: BUPROPION
     Dosage: UNK
  5. PILOCARPINE [Concomitant]
     Active Substance: PILOCARPINE
     Dosage: UNK
  6. OPZELURA [Concomitant]
     Active Substance: RUXOLITINIB PHOSPHATE
     Dosage: UNK
  7. NASCOBAL [Concomitant]
     Active Substance: CYANOCOBALAMIN
     Dosage: UNK
  8. SIMVASTATIN [Concomitant]
     Active Substance: SIMVASTATIN
     Dosage: UNK
  9. ONDANSETRON [Concomitant]
     Active Substance: ONDANSETRON
     Dosage: UNK
  10. LAGEVRIO [Concomitant]
     Active Substance: MOLNUPIRAVIR
     Dosage: UNK
  11. DULOXETINE [Concomitant]
     Active Substance: DULOXETINE
     Dosage: UNK
  12. VITAMIN D2 [Concomitant]
     Active Substance: ERGOCALCIFEROL
     Dosage: UNK
  13. LISINOPRIL [Concomitant]
     Active Substance: LISINOPRIL
     Dosage: UNK
  14. PANTOPRAZOLE [Concomitant]
     Active Substance: PANTOPRAZOLE
     Dosage: UNK
  15. HYDROXYZINE [Concomitant]
     Active Substance: HYDROXYZINE HYDROCHLORIDE
     Dosage: UNK
  16. DOXEPIN [Concomitant]
     Active Substance: DOXEPIN
     Dosage: UNK
  17. SKYRIZI [Concomitant]
     Active Substance: RISANKIZUMAB-RZAA
     Dosage: UNK

REACTIONS (3)
  - Headache [Unknown]
  - Inflammation [Unknown]
  - Rash [Unknown]
